FAERS Safety Report 4338124-X (Version None)
Quarter: 2004Q2

REPORT INFORMATION
  Report Type: 
  Country: None (occurrence: None)
  Receive Date: 20040412
  Receipt Date: 20040405
  Transmission Date: 20050107
  Serious: No
  Sender: FDA-Public Use
  Company Number: 7784

PATIENT
  Age: 11 Year

DRUGS (1)
  1. PAMIDRONIC ACID [Suspect]
     Indication: OSTEOPOROSIS
     Route: 048

REACTIONS (4)
  - BLOOD CREATINE PHOSPHOKINASE INCREASED [None]
  - BLOOD LACTATE DEHYDROGENASE INCREASED [None]
  - MYALGIA [None]
  - MYOSITIS [None]
